FAERS Safety Report 14617926 (Version 2)
Quarter: 2018Q1

REPORT INFORMATION
  Report Type: Spontaneous
  Country: US (occurrence: US)
  Receive Date: 20180309
  Receipt Date: 20180322
  Transmission Date: 20180509
  Serious: Yes (Other)
  Sender: FDA-Public Use
  Company Number: US-ALLERGAN-1812897US

PATIENT

DRUGS (2)
  1. RISEDRONATE SODIUM UNK [Suspect]
     Active Substance: RISEDRONATE SODIUM
     Indication: OTOSCLEROSIS
     Dosage: 35 MG, Q WEEK
     Route: 048
  2. RISEDRONATE SODIUM UNK [Suspect]
     Active Substance: RISEDRONATE SODIUM
     Indication: DEAFNESS NEUROSENSORY

REACTIONS (2)
  - Deafness neurosensory [Not Recovered/Not Resolved]
  - Off label use [Unknown]
